FAERS Safety Report 7630681-0 (Version None)
Quarter: 2011Q3

REPORT INFORMATION
  Report Type: 
  Country: None (occurrence: None)
  Receive Date: 20110722
  Receipt Date: 20110705
  Transmission Date: 20111222
  Serious: No
  Sender: FDA-Public Use
  Company Number: US-B.I. PHARMACEUTICALS,INC./RIDGEFIELD-2011-BP-17095BP

PATIENT
  Age: 59 Year
  Sex: Female

DRUGS (7)
  1. CELEBREX [Concomitant]
     Indication: OSTEOARTHRITIS
  2. ZYRTEC [Concomitant]
     Indication: HYPERSENSITIVITY
  3. NORVASC [Concomitant]
     Indication: HYPERTENSION
     Dates: start: 20110101
  4. SPIRIVA [Suspect]
     Indication: ASTHMA
     Dosage: 18 MCG
     Route: 055
     Dates: start: 20090101
  5. SYNTHROID [Concomitant]
     Indication: THYROID DISORDER
  6. NEXIUM [Concomitant]
     Indication: GASTROOESOPHAGEAL REFLUX DISEASE
  7. SINGULAIR [Concomitant]
     Indication: ASTHMA

REACTIONS (3)
  - FATIGUE [None]
  - DYSPNOEA [None]
  - COUGH [None]
